FAERS Safety Report 9291207 (Version 2)
Quarter: 2013Q3

REPORT INFORMATION
  Report Type: Report from Study
  Country: CA (occurrence: CA)
  Receive Date: 20130515
  Receipt Date: 20130822
  Transmission Date: 20140515
  Serious: Yes (Hospitalization, Other)
  Sender: FDA-Public Use
  Company Number: CA-ABBOTT-13P-028-1088196-00

PATIENT
  Age: 76 Year
  Sex: Male
  Weight: 73.09 kg

DRUGS (1)
  1. LUPRON DEPOT [Suspect]
     Indication: PROSTATE CANCER
     Dates: start: 20120116

REACTIONS (7)
  - Mobility decreased [Unknown]
  - Cataract [Unknown]
  - Visual acuity reduced [Unknown]
  - Blood urine present [Unknown]
  - Dysstasia [Not Recovered/Not Resolved]
  - Anaemia [Unknown]
  - Cataract [Unknown]
